FAERS Safety Report 5474395-4 (Version None)
Quarter: 2007Q4

REPORT INFORMATION
  Report Type: 
  Country: None (occurrence: None)
  Receive Date: 20071002
  Receipt Date: 20070926
  Transmission Date: 20080405
  Serious: Yes (Disabling)
  Sender: FDA-Public Use
  Company Number: DK-AVENTIS-200718934GDDC

PATIENT
  Age: 8 Year
  Sex: Male
  Weight: 36.5 kg

DRUGS (1)
  1. MINIRIN [Suspect]
     Indication: ENURESIS
     Route: 060
     Dates: start: 20070530, end: 20070723

REACTIONS (4)
  - ACCOMMODATION DISORDER [None]
  - HEADACHE [None]
  - VISION BLURRED [None]
  - VISUAL ACUITY REDUCED [None]
